FAERS Safety Report 25502748 (Version 1)
Quarter: 2025Q3

REPORT INFORMATION
  Report Type: Spontaneous
  Country: GB (occurrence: GB)
  Receive Date: 20250702
  Receipt Date: 20250702
  Transmission Date: 20251020
  Serious: Yes (Hospitalization, Other)
  Sender: RANBAXY
  Company Number: GB-SUN PHARMACEUTICAL INDUSTRIES LTD-2025R1-514340

PATIENT
  Age: 24 Year
  Sex: Male

DRUGS (1)
  1. ASCORBIC ACID [Suspect]
     Active Substance: ASCORBIC ACID
     Indication: Vitamin C deficiency
     Route: 048

REACTIONS (5)
  - Therapy non-responder [Unknown]
  - Fall [Unknown]
  - Fracture [Unknown]
  - Knee deformity [Recovering/Resolving]
  - Normocytic anaemia [Unknown]
